FAERS Safety Report 8102359-0 (Version None)
Quarter: 2012Q1

REPORT INFORMATION
  Report Type: 
  Country: None (occurrence: None)
  Receive Date: 20120201
  Receipt Date: 20120127
  Transmission Date: 20120608
  Serious: No
  Sender: FDA-Public Use
  Company Number: US-PFIZER INC-2011304262

PATIENT
  Sex: Female

DRUGS (1)
  1. CYTOMEL [Suspect]
     Dosage: UNK
     Dates: start: 20100901

REACTIONS (5)
  - FEELING ABNORMAL [None]
  - HEADACHE [None]
  - FATIGUE [None]
  - FLATULENCE [None]
  - ABDOMINAL DISCOMFORT [None]
